FAERS Safety Report 23289204 (Version 1)
Quarter: 2023Q4

REPORT INFORMATION
  Report Type: Spontaneous
  Country: HU (occurrence: None)
  Receive Date: 20231212
  Receipt Date: 20231212
  Transmission Date: 20240109
  Serious: Yes (Other)
  Sender: FDA-Public Use
  Company Number: 2023A277052

PATIENT
  Age: 66 Year
  Sex: Male
  Weight: 107.5 kg

DRUGS (1)
  1. DAPAGLIFLOZIN [Suspect]
     Active Substance: DAPAGLIFLOZIN
     Indication: Type 2 diabetes mellitus
     Route: 048

REACTIONS (8)
  - Proteinuria [Unknown]
  - Weight decreased [Unknown]
  - Blood albumin decreased [Unknown]
  - Protein total decreased [Unknown]
  - Glomerular filtration rate decreased [Unknown]
  - Blood pressure increased [Unknown]
  - Weight increased [Unknown]
  - Hypotension [Unknown]
